FAERS Safety Report 25106470 (Version 1)
Quarter: 2025Q1

REPORT INFORMATION
  Report Type: Spontaneous
  Country: US (occurrence: None)
  Receive Date: 20250321
  Receipt Date: 20250321
  Transmission Date: 20250409
  Serious: Yes (unspecified)
  Sender: FDA-CTU
  Company Number: None

PATIENT
  Age: 47 Year
  Sex: Female
  Weight: 61.4 kg

DRUGS (4)
  1. OCRELIZUMAB [Suspect]
     Active Substance: OCRELIZUMAB
     Indication: Relapsing-remitting multiple sclerosis
     Route: 042
     Dates: start: 20220202, end: 20230123
  2. VITAMIN D [Concomitant]
     Active Substance: VITAMIN D NOS
  3. Tretinoin topical cream [Concomitant]
  4. Fingolimod (Ozanimod) [Concomitant]
     Dates: start: 20231103

REACTIONS (1)
  - Breast cancer stage I [None]
